FAERS Safety Report 6458827-0 (Version None)
Quarter: 2009Q4

REPORT INFORMATION
  Report Type: 
  Country: None (occurrence: None)
  Receive Date: 20091123
  Receipt Date: 20091030
  Transmission Date: 20100525
  Serious: Yes (Other)
  Sender: FDA-Public Use
  Company Number: WAES 0911FRA00006

PATIENT
  Sex: 0

DRUGS (4)
  1. ISENTRESS [Suspect]
     Indication: HIV INFECTION
     Dosage: 400 MG BID PO
     Route: 048
  2. DARUNAVIR [Suspect]
     Dosage: PO
     Route: 048
  3. RITONAVIR [Suspect]
     Dosage: PO
     Route: 048
  4. ETRAVIRINE [Suspect]
     Dosage: PO
     Route: 048

REACTIONS (3)
  - DISEASE PROGRESSION [None]
  - IMMUNE RECONSTITUTION SYNDROME [None]
  - OSTEOMYELITIS [None]
